FAERS Safety Report 17295955 (Version 1)
Quarter: 2020Q1

REPORT INFORMATION
  Report Type: Report from Study
  Country: None (occurrence: NL)
  Receive Date: 20200122
  Receipt Date: 20200122
  Transmission Date: 20200409
  Serious: Yes (Death)
  Sender: FDA-Public Use
  Company Number: NL-ABBVIE-19S-114-2657999-00

PATIENT
  Age: 61 Year
  Sex: Male
  Weight: 75 kg

DRUGS (2)
  1. NUTRIDRINK [Concomitant]
     Active Substance: CARBOHYDRATES\FATTY ACIDS\MINERALS\PROTEIN\VITAMINS
     Indication: PRODUCT USED FOR UNKNOWN INDICATION
  2. DUODOPA [Suspect]
     Active Substance: CARBIDOPA\LEVODOPA
     Indication: PARKINSON^S DISEASE
     Dosage: 24 HOUR TREATMENT?STRENGTH (CMP): 20 MG/ML 5 MG/ML
     Route: 050
     Dates: start: 20190121

REACTIONS (19)
  - Dysphagia [Fatal]
  - Parkinson^s disease [Fatal]
  - Grip strength decreased [Not Recovered/Not Resolved]
  - Stoma site pain [Not Recovered/Not Resolved]
  - Fibroma [Not Recovered/Not Resolved]
  - Muscular weakness [Not Recovered/Not Resolved]
  - Hypoaesthesia [Not Recovered/Not Resolved]
  - Oxygen saturation decreased [Recovered/Resolved]
  - Abnormal faeces [Not Recovered/Not Resolved]
  - Weight increased [Recovered/Resolved]
  - Stoma site discharge [Recovered/Resolved]
  - Stoma site discharge [Not Recovered/Not Resolved]
  - Mastication disorder [Not Recovered/Not Resolved]
  - Hypophagia [Not Recovered/Not Resolved]
  - Stoma site discomfort [Not Recovered/Not Resolved]
  - Sluggishness [Not Recovered/Not Resolved]
  - Abnormal faeces [Recovered/Resolved]
  - Feeding disorder [Not Recovered/Not Resolved]
  - Malaise [Recovered/Resolved]

NARRATIVE: CASE EVENT DATE: 2019
